FAERS Safety Report 15693719 (Version 3)
Quarter: 2019Q3

REPORT INFORMATION
  Report Type: Spontaneous
  Country: DE (occurrence: DE)
  Receive Date: 20181206
  Receipt Date: 20190823
  Transmission Date: 20191004
  Serious: Yes (Hospitalization, Other)
  Sender: FDA-Public Use
  Company Number: DE-AUROBINDO-AUR-APL-2018-058829

PATIENT

DRUGS (9)
  1. ALLOPURINOL. [Concomitant]
     Active Substance: ALLOPURINOL
     Indication: BLOOD URIC ACID INCREASED
     Dosage: UNK
     Route: 065
  2. PANTOPRAZOLE [Concomitant]
     Active Substance: PANTOPRAZOLE
     Indication: PROPHYLAXIS
     Dosage: AS NECESSARY (UNK, PRN)
     Route: 048
  3. OPSUMIT [Suspect]
     Active Substance: MACITENTAN
     Indication: PULMONARY ARTERIAL HYPERTENSION
     Dosage: 10 MILLIGRAM, ONCE A DAY (10 MG, QD)
     Route: 048
     Dates: start: 201405
  4. ZEMPLAR [Concomitant]
     Active Substance: PARICALCITOL
     Indication: VITAMIN SUPPLEMENTATION
     Dosage: UNK
     Route: 048
  5. SILDENAFIL FILM-COATED TABLET [Suspect]
     Active Substance: SILDENAFIL
     Indication: PULMONARY ARTERIAL HYPERTENSION
     Dosage: 60 MILLIGRAM, ONCE A DAY (60 MG, QD)
     Route: 048
     Dates: start: 20180528, end: 20180604
  6. METOCLOPRAMIDA [Concomitant]
     Active Substance: METOCLOPRAMIDE HYDROCHLORIDE
     Indication: PROPHYLAXIS OF NAUSEA AND VOMITING
     Dosage: AS NECESSARY (UNK, PRN)
     Route: 048
  7. NOVALGIN [Concomitant]
     Indication: PAIN PROPHYLAXIS
     Dosage: AS NECESSARY (UNK, PRN)
     Route: 048
  8. VALSARTAN. [Concomitant]
     Active Substance: VALSARTAN
     Indication: CARDIAC FAILURE
     Dosage: UNK
     Route: 048
  9. FUROSEMIDE. [Concomitant]
     Active Substance: FUROSEMIDE
     Indication: PROPHYLAXIS
     Dosage: UNK
     Route: 048

REACTIONS (14)
  - End stage renal disease [Recovered/Resolved with Sequelae]
  - Concomitant disease progression [Recovered/Resolved with Sequelae]
  - Dry mouth [Unknown]
  - Disease progression [Unknown]
  - Nausea [Unknown]
  - Pulmonary arterial hypertension [Unknown]
  - Urosepsis [Recovered/Resolved with Sequelae]
  - Pulmonary hypertension [Unknown]
  - Dialysis [Unknown]
  - Headache [Unknown]
  - Diarrhoea [Unknown]
  - Blood creatinine increased [Recovered/Resolved with Sequelae]
  - Creatinine renal clearance decreased [Recovered/Resolved with Sequelae]
  - C-reactive protein increased [Recovered/Resolved with Sequelae]

NARRATIVE: CASE EVENT DATE: 20180614
